FAERS Safety Report 5952916-2 (Version None)
Quarter: 2008Q4

REPORT INFORMATION
  Report Type: 
  Country: None (occurrence: None)
  Receive Date: 20081114
  Receipt Date: 20081106
  Transmission Date: 20090506
  Serious: Yes (Other)
  Sender: FDA-Public Use
  Company Number: US-AMGEN-US315154

PATIENT
  Sex: Female
  Weight: 50 kg

DRUGS (9)
  1. NPLATE [Suspect]
     Indication: IDIOPATHIC THROMBOCYTOPENIC PURPURA
     Route: 058
     Dates: start: 20081009
  2. IMMUNE GLOBULIN NOS [Concomitant]
  3. CORTICOSTEROIDS [Concomitant]
  4. VYTORIN [Concomitant]
  5. FORTEO [Concomitant]
  6. LEVOTHYROXINE SODIUM [Concomitant]
  7. MULTI-VITAMINS [Concomitant]
  8. CALCIUM [Concomitant]
  9. GLUCOSAMINE [Concomitant]

REACTIONS (2)
  - DYSPHAGIA [None]
  - FLUSHING [None]
